FAERS Safety Report 6275621-4 (Version None)
Quarter: 2009Q3

REPORT INFORMATION
  Report Type: 
  Country: None (occurrence: None)
  Receive Date: 20090721
  Receipt Date: 20090608
  Transmission Date: 20100115
  Serious: Yes (Hospitalization)
  Sender: FDA-Public Use
  Company Number: FR-PFIZER INC-A204598

PATIENT
  Age: 36 Year

DRUGS (3)
  1. ZIPRASIDONE HCL [Suspect]
     Indication: SCHIZOAFFECTIVE DISORDER
     Dosage: UNK
     Route: 048
     Dates: start: 20020109, end: 20020211
  2. ZOLOFT [Suspect]
     Route: 048
     Dates: start: 20020219
  3. IMOVANE [Concomitant]
     Route: 048
     Dates: start: 20020211

REACTIONS (1)
  - PANIC ATTACK [None]
